FAERS Safety Report 8061567-8 (Version None)
Quarter: 2012Q1

REPORT INFORMATION
  Report Type: 
  Country: None (occurrence: None)
  Receive Date: 20120122
  Receipt Date: 20120112
  Transmission Date: 20120608
  Serious: Yes (Other)
  Sender: FDA-Public Use
  Company Number: PHHY2012CA003150

PATIENT
  Sex: Female

DRUGS (1)
  1. GILENYA [Suspect]
     Indication: RELAPSING-REMITTING MULTIPLE SCLEROSIS
     Dosage: 0.5 MG, QD
     Route: 048
     Dates: start: 20120112

REACTIONS (4)
  - BUNDLE BRANCH BLOCK LEFT [None]
  - ATRIOVENTRICULAR BLOCK FIRST DEGREE [None]
  - HEART RATE DECREASED [None]
  - CHEST PAIN [None]
